FAERS Safety Report 4552536-0 (Version None)
Quarter: 2005Q1

REPORT INFORMATION
  Report Type: 
  Country: None (occurrence: None)
  Receive Date: 20050114
  Receipt Date: 20040803
  Transmission Date: 20050727
  Serious: No
  Sender: FDA-Public Use
  Company Number: US-GLAXOSMITHKLINE-A0520767A

PATIENT
  Sex: Female

DRUGS (4)
  1. IMITREX [Suspect]
     Indication: MIGRAINE
     Route: 048
  2. ORAL CONTRACEPTIVES [Concomitant]
  3. SINGULAIR [Concomitant]
  4. INTAL [Concomitant]

REACTIONS (1)
  - BREAST CYST [None]
